FAERS Safety Report 8482438-9 (Version None)
Quarter: 2012Q3

REPORT INFORMATION
  Report Type: 
  Country: None (occurrence: None)
  Receive Date: 20120702
  Receipt Date: 20120618
  Transmission Date: 20120928
  Serious: Yes (Congenital Anomaly)
  Sender: FDA-Public Use
  Company Number: GB-VIIV HEALTHCARE LIMITED-A0982760A

PATIENT
  Sex: Female
  Weight: 3 kg

DRUGS (3)
  1. VIREAD [Suspect]
     Indication: ANTIRETROVIRAL THERAPY
     Dosage: 245MGD PER DAY
     Route: 064
  2. EPIVIR [Suspect]
     Indication: ANTIRETROVIRAL THERAPY
     Dosage: 300MGD PER DAY
     Route: 064
  3. VIRAMUNE [Suspect]
     Indication: ANTIRETROVIRAL THERAPY
     Dosage: 400MGD PER DAY
     Route: 064

REACTIONS (2)
  - ILL-DEFINED DISORDER [None]
  - FOETAL EXPOSURE DURING PREGNANCY [None]
